FAERS Safety Report 5799788-7 (Version None)
Quarter: 2008Q3

REPORT INFORMATION
  Report Type: 
  Country: None (occurrence: None)
  Receive Date: 20080702
  Receipt Date: 20080702
  Transmission Date: 20090109
  Serious: Yes (Other)
  Sender: FDA-Public Use
  Company Number: None

PATIENT
  Age: 62 Year
  Sex: Female

DRUGS (1)
  1. DIGOXIN [Suspect]
     Dosage: TAKE 1 TABLET ONCE DAILY AS DIRECTED
     Dates: start: 20070501

REACTIONS (2)
  - DIZZINESS [None]
  - VISION BLURRED [None]
